FAERS Safety Report 25908222 (Version 3)
Quarter: 2025Q4

REPORT INFORMATION
  Report Type: Spontaneous
  Country: EU (occurrence: EU)
  Receive Date: 20251010
  Receipt Date: 20251027
  Transmission Date: 20260118
  Serious: Yes (Other)
  Sender: VERITY PHARMACEUTICALS INC.
  Company Number: EU-VER-202500002

PATIENT
  Age: 70 Year
  Sex: Male

DRUGS (3)
  1. TRIPTORELIN PAMOATE [Suspect]
     Active Substance: TRIPTORELIN PAMOATE
     Indication: Neoplasm prostate
     Dosage: POWDER AND SOLVENT FOR SUSPENSION FOR INJECTION
     Route: 065
     Dates: start: 202207
  2. ENZALUTAMIDE [Concomitant]
     Active Substance: ENZALUTAMIDE
     Indication: Product used for unknown indication
     Route: 065
     Dates: start: 202505
  3. DENOSUMAB [Concomitant]
     Active Substance: DENOSUMAB
     Indication: Product used for unknown indication
     Route: 065
     Dates: start: 202505

REACTIONS (13)
  - Retroperitoneal lymphadenopathy [Unknown]
  - Fatigue [Unknown]
  - Fatigue [Recovered/Resolved]
  - Malaise [Unknown]
  - Hot flush [Unknown]
  - Prostatic specific antigen increased [Unknown]
  - Drug ineffective [Unknown]
  - Metastases to bone [Unknown]
  - Asthenia [Recovered/Resolved]
  - Night sweats [Unknown]
  - Asthenia [Unknown]
  - Rectal haemorrhage [Unknown]
  - Rectal stenosis [Unknown]

NARRATIVE: CASE EVENT DATE: 20220701
